FAERS Safety Report 8067011-9 (Version None)
Quarter: 2012Q1

REPORT INFORMATION
  Report Type: 
  Country: None (occurrence: None)
  Receive Date: 20120124
  Receipt Date: 20120114
  Transmission Date: 20120608
  Serious: Yes (Death, Congenital Anomaly)
  Sender: FDA-Public Use
  Company Number: JP-MERCK-1201USA02637B1

PATIENT

DRUGS (1)
  1. PROPECIA [Suspect]
     Route: 064

REACTIONS (3)
  - DEATH [None]
  - FOETAL CHROMOSOME ABNORMALITY [None]
  - FOETAL EXPOSURE DURING PREGNANCY [None]
